FAERS Safety Report 14914168 (Version 1)
Quarter: 2018Q2

REPORT INFORMATION
  Report Type: Spontaneous
  Country: EE (occurrence: EE)
  Receive Date: 20180518
  Receipt Date: 20180518
  Transmission Date: 20180711
  Serious: Yes (Death)
  Sender: FDA-Public Use
  Company Number: EE-009507513-1805EST007082

PATIENT
  Age: 70 Year
  Sex: Male
  Weight: 65 kg

DRUGS (5)
  1. KEYTRUDA [Suspect]
     Active Substance: PEMBROLIZUMAB
     Indication: LUNG CARCINOMA CELL TYPE UNSPECIFIED STAGE IV
     Dosage: 200 MG, ONCE, IN TOTAL
     Route: 042
     Dates: start: 20180413, end: 20180413
  2. VENTOLINE (ALBUTEROL SULFATE) [Concomitant]
     Active Substance: ALBUTEROL SULFATE
     Indication: CHRONIC OBSTRUCTIVE PULMONARY DISEASE
     Dosage: 200 MG, AS NECESSARY
     Route: 055
     Dates: start: 201803
  3. INCRUSE ELLIPTA [Concomitant]
     Active Substance: UMECLIDINIUM BROMIDE
     Indication: CHRONIC OBSTRUCTIVE PULMONARY DISEASE
     Dosage: 55 MICROGRAM, QD
     Route: 055
     Dates: start: 201803
  4. CARDACE (RAMIPRIL) [Concomitant]
     Indication: HYPERTENSION
     Dosage: 5 MG, QD
     Route: 048
  5. RELVAR ELLIPTA [Concomitant]
     Active Substance: FLUTICASONE FUROATE\VILANTEROL TRIFENATATE
     Indication: CHRONIC OBSTRUCTIVE PULMONARY DISEASE
     Dosage: UNK
     Route: 055
     Dates: start: 201803

REACTIONS (4)
  - Condition aggravated [Fatal]
  - Lower respiratory tract infection [Fatal]
  - Confusional state [Fatal]
  - Respiratory failure [Fatal]

NARRATIVE: CASE EVENT DATE: 20180413
